FAERS Safety Report 13053697 (Version 1)
Quarter: 2016Q4

REPORT INFORMATION
  Report Type: Spontaneous
  Country: US (occurrence: US)
  Receive Date: 20161222
  Receipt Date: 20161222
  Transmission Date: 20170207
  Serious: Yes (Hospitalization)
  Sender: FDA-Public Use
  Company Number: US-STRIDES ARCOLAB LIMITED-2016SP019958

PATIENT

DRUGS (2)
  1. CALCIUM CARBONATE. [Suspect]
     Active Substance: CALCIUM CARBONATE
     Indication: POLYGLANDULAR AUTOIMMUNE SYNDROME TYPE I
     Dosage: 3G ELEMENTAL CALCIUM/DAY IN DIVIDED DOSES
  2. CALCITRIOL. [Suspect]
     Active Substance: CALCITRIOL
     Indication: POLYGLANDULAR AUTOIMMUNE SYNDROME TYPE I
     Dosage: 0.75 ?G/DAY

REACTIONS (12)
  - Vomiting [Unknown]
  - Abdominal pain [Unknown]
  - Nephrocalcinosis [Not Recovered/Not Resolved]
  - Hypertension [Unknown]
  - Acute kidney injury [Unknown]
  - Hypercalcaemia [Recovered/Resolved]
  - Fatigue [Unknown]
  - Polyuria [Unknown]
  - Polydipsia [Unknown]
  - Milk-alkali syndrome [Unknown]
  - Metabolic alkalosis [Unknown]
  - Headache [Unknown]
